FAERS Safety Report 8245497-4 (Version None)
Quarter: 2012Q1

REPORT INFORMATION
  Report Type: 
  Country: None (occurrence: None)
  Receive Date: 20120329
  Receipt Date: 20120322
  Transmission Date: 20120608
  Serious: Yes (Disabling)
  Sender: FDA-Public Use
  Company Number: FR-ASTRAZENECA-2012SE20078

PATIENT
  Age: 58 Year
  Sex: Female

DRUGS (2)
  1. ARIMIDEX [Suspect]
     Indication: BREAST CANCER
     Route: 048
     Dates: start: 20100101
  2. PREDNISONE [Concomitant]
     Indication: PSORIASIS
     Dosage: EVERY FOUR/FIVE MONTHS FOR FIFTEEN DAYS

REACTIONS (1)
  - TENDON DISORDER [None]
